FAERS Safety Report 4375858-5 (Version None)
Quarter: 2004Q2

REPORT INFORMATION
  Report Type: 
  Country: None (occurrence: None)
  Receive Date: 20040607
  Receipt Date: 20040524
  Transmission Date: 20050107
  Serious: Yes (Other)
  Sender: FDA-Public Use
  Company Number: FR-JNJFOC-20040505455

PATIENT
  Age: 76 Year
  Sex: Female

DRUGS (4)
  1. IXPRIM (TRAMADOL HYDROCHLORIDE) [Suspect]
     Indication: ARTHRALGIA
     Dosage: ORAL
     Route: 048
     Dates: start: 20040501, end: 20040501
  2. FENOFIBRATE [Concomitant]
  3. CLONAZEPAM [Concomitant]
  4. VITAMIN B1 TAB [Concomitant]

REACTIONS (2)
  - ABDOMINAL PAIN [None]
  - RECTAL HAEMORRHAGE [None]
